FAERS Safety Report 21509412 (Version 8)
Quarter: 2024Q1

REPORT INFORMATION
  Report Type: Spontaneous
  Country: US (occurrence: US)
  Receive Date: 20221026
  Receipt Date: 20240213
  Transmission Date: 20240410
  Serious: No
  Sender: FDA-Public Use
  Company Number: US-PFIZER INC-PV202200090084

PATIENT
  Age: 66 Year
  Sex: Female

DRUGS (3)
  1. EUCRISA [Suspect]
     Active Substance: CRISABOROLE
     Indication: Rash
     Dosage: APPLY TO AFFECTED AREA ON RASH ON GROIN AND LIBIA TWICE DAILY
     Route: 061
  2. CLOBETASOL [Suspect]
     Active Substance: CLOBETASOL
     Dosage: UNK, 2X/DAY (2 WEEKS)
  3. NYSTATIN [Suspect]
     Active Substance: NYSTATIN
     Dosage: UNK

REACTIONS (3)
  - Off label use [Unknown]
  - Vulvovaginal pruritus [Not Recovered/Not Resolved]
  - Psoriasis [Unknown]

NARRATIVE: CASE EVENT DATE: 20220101
